FAERS Safety Report 9221065 (Version 1)
Quarter: 2013Q2

REPORT INFORMATION
  Report Type: Spontaneous
  Country: GB (occurrence: GB)
  Receive Date: 20130409
  Receipt Date: 20130409
  Transmission Date: 20140414
  Serious: Yes (Other)
  Sender: FDA-Public Use
  Company Number: GB-MERCK-1304GBR003201

PATIENT
  Age: 60 Year
  Sex: Female
  Weight: 66.4 kg

DRUGS (2)
  1. FOSAMAX [Suspect]
     Indication: OSTEOPOROSIS
     Dosage: 1 DF, QW
     Route: 048
     Dates: start: 20130320
  2. ANASTROZOLE [Concomitant]
     Indication: BREAST CANCER

REACTIONS (2)
  - Influenza like illness [Recovering/Resolving]
  - Malaise [Recovering/Resolving]
